FAERS Safety Report 8836498 (Version 1)
Quarter: 2012Q4

REPORT INFORMATION
  Report Type: 
  Country: US (occurrence: US)
  Receive Date: 20121011
  Receipt Date: 20121011
  Transmission Date: 20130627
  Serious: Yes (Disabling)
  Sender: FDA-Public Use
  Company Number: US-ELI_LILLY_AND_COMPANY-US201210000566

PATIENT
  Sex: Female

DRUGS (2)
  1. HUMALOG LISPRO [Suspect]
     Dosage: UNK, unknown
  2. LEVEMIR [Concomitant]
     Dosage: UNK, unknown

REACTIONS (2)
  - Blindness [Not Recovered/Not Resolved]
  - Blood glucose increased [Unknown]
